FAERS Safety Report 6004479-3 (Version None)
Quarter: 2008Q4

REPORT INFORMATION
  Report Type: 
  Country: None (occurrence: None)
  Receive Date: 20081216
  Receipt Date: 20081215
  Transmission Date: 20090506
  Serious: Yes (Life-Threatening, Hospitalization)
  Sender: FDA-Public Use
  Company Number: PHHO2008DE08430

PATIENT
  Sex: Female

DRUGS (4)
  1. SANDIMMUNE [Suspect]
     Indication: LIVER TRANSPLANT
  2. SIMULECT SIC+VIAL+TP [Suspect]
     Indication: LIVER TRANSPLANT
     Dosage: 10 MG, (DAY 0)
     Route: 042
     Dates: start: 20080618, end: 20080618
  3. SIMULECT SIC+VIAL+TP [Suspect]
     Dosage: 10 MG, (DAY 4)
     Dates: start: 20080622, end: 20080622
  4. DECORTIN [Concomitant]

REACTIONS (9)
  - ATELECTASIS [None]
  - CARDIOVASCULAR INSUFFICIENCY [None]
  - DYSPNOEA [None]
  - HISTIOCYTOSIS HAEMATOPHAGIC [None]
  - OBSTRUCTION [None]
  - POST PROCEDURAL COMPLICATION [None]
  - PULMONARY HAEMORRHAGE [None]
  - RESPIRATORY FAILURE [None]
  - TRACHEOSTOMY [None]
